FAERS Safety Report 15005206 (Version 2)
Quarter: 2018Q3

REPORT INFORMATION
  Report Type: Spontaneous
  Country: US (occurrence: US)
  Receive Date: 20180613
  Receipt Date: 20180705
  Transmission Date: 20181010
  Serious: Yes (Hospitalization)
  Sender: FDA-Public Use
  Company Number: US-UNITED THERAPEUTICS-UNT-2018-008272

PATIENT
  Age: 0 Year
  Sex: Female
  Weight: 4.99 kg

DRUGS (3)
  1. REMODULIN [Suspect]
     Active Substance: TREPROSTINIL
     Dosage: 0.112 ?G/KG, CONTINUING
     Route: 058
  2. TRACLEER [Concomitant]
     Active Substance: BOSENTAN
     Indication: PRODUCT USED FOR UNKNOWN INDICATION
     Route: 065
  3. REMODULIN [Suspect]
     Active Substance: TREPROSTINIL
     Indication: PULMONARY HYPERTENSION
     Dosage: 0.1 ?G/KG, CONTINUING
     Route: 058
     Dates: start: 20180201

REACTIONS (3)
  - Pyrexia [Recovered/Resolved]
  - Dyspnoea [Not Recovered/Not Resolved]
  - Respiratory rate increased [Unknown]

NARRATIVE: CASE EVENT DATE: 2018
